FAERS Safety Report 6405464-X (Version None)
Quarter: 2009Q4

REPORT INFORMATION
  Report Type: 
  Country: None (occurrence: None)
  Receive Date: 20091016
  Receipt Date: 20091016
  Transmission Date: 20100525
  Serious: Yes (Other)
  Sender: FDA-Public Use
  Company Number: None

PATIENT
  Sex: Female
  Weight: 90.2658 kg

DRUGS (1)
  1. RECLAST [Suspect]
     Indication: OSTEOPOROSIS
     Dosage: 5 MG IN 100 ML#1 ONCE A YEAR IV
     Route: 042
     Dates: start: 20090716

REACTIONS (7)
  - CHILLS [None]
  - EYE HAEMORRHAGE [None]
  - FEELING ABNORMAL [None]
  - HEADACHE [None]
  - PAIN [None]
  - PRURITUS GENERALISED [None]
  - PYREXIA [None]
